FAERS Safety Report 7906955-2 (Version None)
Quarter: 2011Q4

REPORT INFORMATION
  Report Type: 
  Country: None (occurrence: None)
  Receive Date: 20111110
  Receipt Date: 20111012
  Transmission Date: 20120403
  Serious: No
  Sender: FDA-Public Use
  Company Number: US-COVIDIEN/TYCO HEALTHCARE/MALLINCKRODT-T201102386

PATIENT
  Age: 44 Year
  Sex: Female

DRUGS (8)
  1. TYLENOL (CAPLET) [Concomitant]
  2. PENNSAID [Suspect]
     Dosage: 40 GTT, TID
  3. NAPROXEN [Concomitant]
  4. FLONASE [Concomitant]
  5. CHERATUSSIN                        /01240701/ [Concomitant]
  6. PENNSAID [Suspect]
     Dosage: 20 GTT, BID
  7. ZYRTEC [Concomitant]
  8. IBUPROFEN [Concomitant]

REACTIONS (2)
  - DRUG INEFFECTIVE [None]
  - INFLUENZA [None]
